FAERS Safety Report 22621359 (Version 2)
Quarter: 2025Q3

REPORT INFORMATION
  Report Type: Spontaneous
  Country: EU (occurrence: EU)
  Receive Date: 20230620
  Receipt Date: 20250707
  Transmission Date: 20251021
  Serious: Yes (Other)
  Sender: GLENMARK
  Company Number: EU-GLENMARK PHARMACEUTICALS-2023GMK082561

PATIENT
  Age: 36 Year
  Sex: Female
  Weight: 74 kg

DRUGS (5)
  1. RYALTRIS [Suspect]
     Active Substance: MOMETASONE FUROATE MONOHYDRATE\OLOPATADINE HYDROCHLORIDE
     Indication: Rhinitis allergic
     Route: 045
     Dates: start: 20230601, end: 202306
  2. RYALTRIS [Suspect]
     Active Substance: MOMETASONE FUROATE MONOHYDRATE\OLOPATADINE HYDROCHLORIDE
  3. DEXTROMETHORPHAN HYDROBROMIDE [Concomitant]
     Active Substance: DEXTROMETHORPHAN HYDROBROMIDE
     Indication: Cough
     Dosage: 1 DOSAGE FORM, TID, (UNIT DOSE 30 MG)
     Route: 048
     Dates: start: 20230601, end: 20230608
  4. PANTOPRAZOLE SODIUM [Concomitant]
     Active Substance: PANTOPRAZOLE SODIUM
     Indication: Gastrooesophageal reflux disease
     Dosage: 1 DOSAGE FORM, OD, (UNIT DOSE 20 MG)
     Route: 048
     Dates: start: 20230601, end: 20230615
  5. DESLORATADINE [Concomitant]
     Active Substance: DESLORATADINE
     Indication: Rhinitis allergic
     Route: 048
     Dates: start: 20230601, end: 20230615

REACTIONS (8)
  - Suffocation feeling [Unknown]
  - Skin oedema [Unknown]
  - Laryngeal oedema [Unknown]
  - Swelling [Unknown]
  - Rash [Unknown]
  - Swelling face [Unknown]
  - Anaphylactic reaction [Unknown]
  - Angioedema [Unknown]

NARRATIVE: CASE EVENT DATE: 20230601
